FAERS Safety Report 8857552 (Version 1)
Quarter: 2012Q4

REPORT INFORMATION
  Report Type: 
  Country: CN (occurrence: CN)
  Receive Date: 20121024
  Receipt Date: 20121024
  Transmission Date: 20130627
  Serious: Yes (Hospitalization)
  Sender: FDA-Public Use
  Company Number: CN-GLAXOSMITHKLINE-B0839710A

PATIENT
  Age: 56 Year
  Sex: Female
  Weight: 75 kg

DRUGS (1)
  1. LAMICTAL [Suspect]
     Indication: EPILEPSY
     Dosage: 50MG Three times per day
     Route: 048
     Dates: start: 20110218, end: 20110318

REACTIONS (5)
  - Aphagia [Recovered/Resolved]
  - Rash erythematous [Recovered/Resolved]
  - Conjunctival hyperaemia [Recovered/Resolved]
  - Oral mucosa erosion [Recovered/Resolved]
  - Iris disorder [Recovered/Resolved]
